FAERS Safety Report 6579485-0 (Version None)
Quarter: 2010Q1

REPORT INFORMATION
  Report Type: 
  Country: None (occurrence: None)
  Receive Date: 20100212
  Receipt Date: 20100204
  Transmission Date: 20100710
  Serious: Yes (Death)
  Sender: FDA-Public Use
  Company Number: IT-TEVA-223544ISR

PATIENT
  Sex: Male

DRUGS (3)
  1. VINCRISTINE [Suspect]
     Indication: ACUTE MYELOID LEUKAEMIA
     Route: 042
     Dates: start: 20091107, end: 20091107
  2. CYCLOPHOSPHAMIDE [Suspect]
     Indication: ACUTE MYELOID LEUKAEMIA
     Route: 042
     Dates: start: 20091104, end: 20091106
  3. IDARUBICIN HYDROCHLORIDE [Suspect]
     Indication: ACUTE MYELOID LEUKAEMIA
     Route: 042
     Dates: start: 20091107, end: 20091108

REACTIONS (4)
  - HYPERPYREXIA [None]
  - PNEUMONITIS [None]
  - RESPIRATORY FAILURE [None]
  - SEPTIC SHOCK [None]
